FAERS Safety Report 5145558-2 (Version None)
Quarter: 2006Q4

REPORT INFORMATION
  Report Type: 
  Country: None (occurrence: None)
  Receive Date: 20061101
  Receipt Date: 20061023
  Transmission Date: 20070319
  Serious: Yes (Other)
  Sender: FDA-Public Use
  Company Number: 163-20785-06101086

PATIENT
  Age: 43 Year
  Sex: Male
  Weight: 82.5547 kg

DRUGS (2)
  1. THALOMID [Suspect]
     Indication: HAEMANGIOBLASTOMA
     Dosage: 200 MG, 2 IN 1 D, ORAL; SEE IMAGE
     Route: 048
     Dates: start: 20051220, end: 20061020
  2. THALOMID [Suspect]
     Indication: HAEMANGIOBLASTOMA
     Dosage: 200 MG, 2 IN 1 D, ORAL; SEE IMAGE
     Route: 048
     Dates: start: 20060101

REACTIONS (2)
  - MUSCLE ATROPHY [None]
  - NEUROPATHY [None]
